FAERS Safety Report 5037580-1 (Version None)
Quarter: 2006Q2

REPORT INFORMATION
  Report Type: 
  Country: None (occurrence: None)
  Receive Date: 20060628
  Receipt Date: 20060628
  Transmission Date: 20061013
  Serious: Yes (Hospitalization)
  Sender: FDA-Public Use
  Company Number: FR-GLAXOSMITHKLINE-B0429021A

PATIENT
  Age: 83 Year
  Sex: Female

DRUGS (4)
  1. CLAMOXYL [Suspect]
     Indication: ERYSIPELAS
     Route: 048
     Dates: start: 20060519, end: 20060527
  2. CELECTOL [Concomitant]
     Indication: ESSENTIAL HYPERTENSION
     Dosage: 200MG PER DAY
     Route: 048
  3. DIAFUSOR 10 [Concomitant]
     Dosage: 10MG PER DAY
     Route: 062
  4. KARDEGIC 160 [Concomitant]
     Dosage: 160MG PER DAY
     Route: 048

REACTIONS (2)
  - INFLAMMATION [None]
  - PURPURA [None]
